FAERS Safety Report 8920348 (Version 1)
Quarter: 2012Q4

REPORT INFORMATION
  Report Type: 
  Country: IT (occurrence: IT)
  Receive Date: 20121122
  Receipt Date: 20121122
  Transmission Date: 20130627
  Serious: Yes (Other)
  Sender: FDA-Public Use
  Company Number: IT-JNJFOC-20121105966

PATIENT
  Age: 46 Year
  Sex: Female

DRUGS (11)
  1. RISPERDAL [Suspect]
     Indication: SELF INJURIOUS BEHAVIOUR
     Route: 048
  2. RISPERDAL [Suspect]
     Indication: SELF INJURIOUS BEHAVIOUR
     Route: 048
  3. RISPERDAL [Suspect]
     Indication: PRODUCT USED FOR UNKNOWN INDICATION
     Route: 048
  4. RISPERDAL [Suspect]
     Indication: PRODUCT USED FOR UNKNOWN INDICATION
     Route: 048
  5. SOTALEX [Suspect]
     Indication: SELF INJURIOUS BEHAVIOUR
     Route: 048
  6. GLICLAZIDE [Suspect]
     Indication: SELF INJURIOUS BEHAVIOUR
     Route: 048
  7. LORAZEPAM [Suspect]
     Indication: SELF INJURIOUS BEHAVIOUR
     Route: 048
  8. METFORMINA [Suspect]
     Indication: SELF INJURIOUS BEHAVIOUR
     Route: 048
  9. LANOXIN [Suspect]
     Indication: SELF INJURIOUS BEHAVIOUR
     Route: 048
  10. ARIMIDEX [Suspect]
     Indication: SELF INJURIOUS BEHAVIOUR
     Route: 048
  11. TORVAST [Suspect]
     Indication: SELF INJURIOUS BEHAVIOUR
     Route: 048

REACTIONS (6)
  - Self injurious behaviour [Unknown]
  - Intentional overdose [Unknown]
  - Coma [Unknown]
  - Hallucination [Unknown]
  - Hypotension [Unknown]
  - Pain [Unknown]
